FAERS Safety Report 18666295 (Version 1)
Quarter: 2020Q4

REPORT INFORMATION
  Report Type: Spontaneous
  Country: US (occurrence: US)
  Receive Date: 20201226
  Receipt Date: 20201226
  Transmission Date: 20210114
  Serious: No
  Sender: FDA-Public Use
  Company Number: US-TEVA-2020-US-1861074

PATIENT
  Age: 54 Year
  Sex: Female

DRUGS (1)
  1. FENTORA [Suspect]
     Active Substance: FENTANYL CITRATE
     Indication: CANCER PAIN
     Dosage: 2 TABLETS A DAY
     Route: 065

REACTIONS (2)
  - Tooth loss [Unknown]
  - Loose tooth [Unknown]

NARRATIVE: CASE EVENT DATE: 2017
